FAERS Safety Report 9123588 (Version 1)
Quarter: 2013Q1

REPORT INFORMATION
  Report Type: Spontaneous
  Country: ES (occurrence: None)
  Receive Date: 20130131
  Receipt Date: 20130131
  Transmission Date: 20140127
  Serious: Yes (Other)
  Sender: FDA-Public Use
  Company Number: 2013SUN00029

PATIENT
  Age: 60 Year
  Sex: Male

DRUGS (1)
  1. GEMCITABINE [Suspect]
     Dosage: 1450 MG/M2, ONE DAY 1, 8 AND 15 OF CYCLE, UNKNOWN

REACTIONS (3)
  - Thrombotic microangiopathy [None]
  - Lividity [None]
  - Pain [None]
